FAERS Safety Report 8963050 (Version 2)
Quarter: 2013Q2

REPORT INFORMATION
  Report Type: Spontaneous
  Country: CH (occurrence: CH)
  Receive Date: 20121213
  Receipt Date: 20130402
  Transmission Date: 20140414
  Serious: Yes (Hospitalization, Other)
  Sender: FDA-Public Use
  Company Number: PHHY2012CH114438

PATIENT
  Sex: Female

DRUGS (2)
  1. TOBI PODHALER [Suspect]
     Dosage: UNK
     Dates: start: 201209, end: 201210
  2. TOBI PODHALER [Suspect]
     Dosage: UNK UKN, UNK

REACTIONS (5)
  - Haemoptysis [Recovered/Resolved]
  - Pneumonia [Unknown]
  - Lung infiltration [Unknown]
  - Cough [Unknown]
  - Infection [Unknown]
